FAERS Safety Report 17971502 (Version 1)
Quarter: 2020Q3

REPORT INFORMATION
  Report Type: Spontaneous
  Country: SE (occurrence: SE)
  Receive Date: 20200701
  Receipt Date: 20200701
  Transmission Date: 20201103
  Serious: Yes (Other)
  Sender: FDA-Public Use
  Company Number: SE-EXELIXIS-CABO-20030930

PATIENT
  Age: 59 Year
  Sex: Female

DRUGS (1)
  1. CABOMETYX [Suspect]
     Active Substance: CABOZANTINIB S-MALATE
     Indication: PRODUCT USED FOR UNKNOWN INDICATION
     Dosage: 40 MG
     Dates: start: 20190128, end: 20200207

REACTIONS (2)
  - Colitis [Recovering/Resolving]
  - Blood thyroid stimulating hormone increased [Unknown]
